FAERS Safety Report 12503466 (Version 1)
Quarter: 2016Q2

REPORT INFORMATION
  Report Type: Spontaneous
  Country: US (occurrence: None)
  Receive Date: 20160627
  Receipt Date: 20160627
  Transmission Date: 20160815
  Serious: No
  Sender: FDA-Public Use
  Company Number: None

PATIENT
  Age: 31 Year
  Sex: Female
  Weight: 81.65 kg

DRUGS (4)
  1. ACYCLOVIR, 400 MG [Suspect]
     Active Substance: ACYCLOVIR
     Indication: HERPES SIMPLEX
     Route: 048
     Dates: start: 20160617, end: 20160620
  2. QVAR [Concomitant]
     Active Substance: BECLOMETHASONE DIPROPIONATE
  3. UP4 PROBIOTICS [Concomitant]
  4. NATURE^S WAY ALIVE! WOMEN^S ULTRA [Concomitant]

REACTIONS (3)
  - Pruritus [None]
  - Myalgia [None]
  - Rash [None]

NARRATIVE: CASE EVENT DATE: 20160619
